FAERS Safety Report 21420130 (Version 2)
Quarter: 2022Q4

REPORT INFORMATION
  Report Type: Spontaneous
  Country: US (occurrence: US)
  Receive Date: 20221007
  Receipt Date: 20221021
  Transmission Date: 20230113
  Serious: No
  Sender: FDA-Public Use
  Company Number: US-AMGEN-USASP2022168839

PATIENT
  Sex: Male

DRUGS (2)
  1. ENBREL [Suspect]
     Active Substance: ETANERCEPT
     Indication: Product used for unknown indication
     Dosage: UNK UNK, Q2WK
     Route: 065
  2. COVID-19 vaccine [Concomitant]
     Indication: COVID-19 immunisation
     Route: 065

REACTIONS (1)
  - Inappropriate schedule of product administration [Unknown]
